FAERS Safety Report 23641514 (Version 1)
Quarter: 2024Q1

REPORT INFORMATION
  Report Type: Spontaneous
  Country: US (occurrence: US)
  Receive Date: 20240318
  Receipt Date: 20240318
  Transmission Date: 20240410
  Serious: No
  Sender: FDA-Public Use
  Company Number: US-JNJFOC-20240347765

PATIENT
  Age: 34 Year
  Sex: Female

DRUGS (4)
  1. VELETRI [Suspect]
     Active Substance: EPOPROSTENOL
     Indication: Product used for unknown indication
     Route: 042
  2. TREPROSTINIL [Suspect]
     Active Substance: TREPROSTINIL
     Indication: Pulmonary arterial hypertension
     Route: 055
  3. TREPROSTINIL [Suspect]
     Active Substance: TREPROSTINIL
     Route: 055
  4. TREPROSTINIL [Suspect]
     Active Substance: TREPROSTINIL
     Route: 055

REACTIONS (2)
  - Flushing [Unknown]
  - Dyspnoea [Unknown]
